FAERS Safety Report 13695406 (Version 5)
Quarter: 2019Q2

REPORT INFORMATION
  Report Type: Spontaneous
  Country: US (occurrence: US)
  Receive Date: 20170627
  Receipt Date: 20190620
  Transmission Date: 20190711
  Serious: No
  Sender: FDA-Public Use
  Company Number: US-ACTELION-A-NJ2017-154270

PATIENT
  Sex: Female
  Weight: 74.83 kg

DRUGS (10)
  1. DILTIAZEM. [Concomitant]
     Active Substance: DILTIAZEM
  2. OPSUMIT [Concomitant]
     Active Substance: MACITENTAN
     Route: 048
  3. SILDENAFIL. [Concomitant]
     Active Substance: SILDENAFIL
  4. UPTRAVI [Suspect]
     Active Substance: SELEXIPAG
     Dosage: 1600 MCG, BID
     Route: 048
  5. UPTRAVI [Suspect]
     Active Substance: SELEXIPAG
     Indication: PULMONARY ARTERIAL HYPERTENSION
     Dosage: 400 MCG, BID
     Route: 048
     Dates: start: 20170514
  6. UPTRAVI [Suspect]
     Active Substance: SELEXIPAG
     Dosage: 800 MCG, BID
     Route: 048
  7. UPTRAVI [Suspect]
     Active Substance: SELEXIPAG
     Dosage: 600 MCG, BID
     Route: 048
  8. UPTRAVI [Suspect]
     Active Substance: SELEXIPAG
     Dosage: 1400 MCG, BID
     Route: 048
  9. UPTRAVI [Suspect]
     Active Substance: SELEXIPAG
     Dosage: UNK
     Route: 048
  10. OXYGEN. [Concomitant]
     Active Substance: OXYGEN

REACTIONS (11)
  - Headache [Not Recovered/Not Resolved]
  - Loss of consciousness [Unknown]
  - Exercise tolerance decreased [Unknown]
  - Bruxism [Unknown]
  - Pulmonary function test decreased [Unknown]
  - Arthralgia [Recovering/Resolving]
  - Nocturnal dyspnoea [Unknown]
  - Dyspnoea exertional [Unknown]
  - Myalgia [Unknown]
  - Drug intolerance [Unknown]
  - Syncope [Unknown]
